FAERS Safety Report 18120241 (Version 2)
Quarter: 2020Q3

REPORT INFORMATION
  Report Type: Spontaneous
  Country: DE (occurrence: DE)
  Receive Date: 20200806
  Receipt Date: 20200812
  Transmission Date: 20201103
  Serious: Yes (Death)
  Sender: FDA-Public Use
  Company Number: DE-MYLANLABS-2020M1069508

PATIENT
  Age: 56 Year
  Sex: Male

DRUGS (12)
  1. TETRACYCLINE [Suspect]
     Active Substance: TETRACYCLINE
     Indication: PERICARDIAL EFFUSION
  2. CLINDAMYCIN. [Suspect]
     Active Substance: CLINDAMYCIN
     Indication: ACTINOMYCOSIS
     Dosage: UNK (FOR 6 WEEKS)
     Dates: start: 1985
  3. ERYTHROMYCIN. [Suspect]
     Active Substance: ERYTHROMYCIN
     Indication: PLEURAL EFFUSION
     Dosage: UNK (FOR 6 WEEKS)
     Dates: start: 1985
  4. CLINDAMYCIN. [Suspect]
     Active Substance: CLINDAMYCIN
     Indication: PERICARDIAL EFFUSION
  5. DIGITALIS [Concomitant]
     Active Substance: DIGITALIS
     Dosage: UNK
  6. TETRACYCLINE [Suspect]
     Active Substance: TETRACYCLINE
     Indication: ACTINOMYCOSIS
     Dosage: UNK
     Dates: start: 1987
  7. ERYTHROMYCIN. [Suspect]
     Active Substance: ERYTHROMYCIN
     Indication: ACTINOMYCOSIS
  8. TETRACYCLINE [Suspect]
     Active Substance: TETRACYCLINE
     Indication: PLEURAL EFFUSION
  9. ERYTHROMYCIN. [Suspect]
     Active Substance: ERYTHROMYCIN
     Indication: PERICARDIAL EFFUSION
  10. ERYTHROMYCIN. [Suspect]
     Active Substance: ERYTHROMYCIN
     Indication: FUSOBACTERIUM INFECTION
  11. CLINDAMYCIN. [Suspect]
     Active Substance: CLINDAMYCIN
     Indication: FUSOBACTERIUM INFECTION
  12. CLINDAMYCIN. [Suspect]
     Active Substance: CLINDAMYCIN
     Indication: PLEURAL EFFUSION

REACTIONS (2)
  - Septic shock [Fatal]
  - Drug ineffective [Fatal]

NARRATIVE: CASE EVENT DATE: 1987
